FAERS Safety Report 7410923-7 (Version None)
Quarter: 2011Q2

REPORT INFORMATION
  Report Type: 
  Country: None (occurrence: None)
  Receive Date: 20110413
  Receipt Date: 20110407
  Transmission Date: 20111010
  Serious: No
  Sender: FDA-Public Use
  Company Number: US-PFIZER INC-2011077834

PATIENT
  Sex: Female

DRUGS (2)
  1. COVERA-HS [Suspect]
     Dosage: UNK
     Route: 048
  2. VERAPAMIL HCL [Suspect]
     Dosage: UNK

REACTIONS (4)
  - FEELING ABNORMAL [None]
  - BLOOD PRESSURE ABNORMAL [None]
  - MEDICATION RESIDUE [None]
  - DRUG INEFFECTIVE [None]
